FAERS Safety Report 7556992-5 (Version None)
Quarter: 2011Q2

REPORT INFORMATION
  Report Type: 
  Country: None (occurrence: None)
  Receive Date: 20110620
  Receipt Date: 20110615
  Transmission Date: 20111010
  Serious: Yes (Death, Life-Threatening)
  Sender: FDA-Public Use
  Company Number: PHHY2010US69388

PATIENT
  Sex: Female

DRUGS (1)
  1. EXJADE [Suspect]
     Indication: NEOPLASM
     Dosage: 500 MG, TID
     Route: 048
     Dates: start: 20100825

REACTIONS (3)
  - NEOPLASM PROGRESSION [None]
  - DEATH [None]
  - NEOPLASM MALIGNANT [None]
